FAERS Safety Report 4377888-6 (Version None)
Quarter: 2004Q2

REPORT INFORMATION
  Report Type: 
  Country: None (occurrence: None)
  Receive Date: 20040609
  Receipt Date: 20040527
  Transmission Date: 20050107
  Serious: Yes (Hospitalization, Other)
  Sender: FDA-Public Use
  Company Number: CIP04000510

PATIENT
  Age: 77 Year
  Sex: Female

DRUGS (9)
  1. DIDRONEL [Suspect]
     Indication: OSTEOPOROSIS
     Dosage: 400 MG DAILY, ORAL
     Route: 048
     Dates: start: 20040107, end: 20040121
  2. PREDNISOLONE [Concomitant]
  3. URSO [Concomitant]
  4. MUCOSTA (REBAMIPIDE) [Concomitant]
  5. OMEPRAZOLE [Concomitant]
  6. GLAKAY (MENATETRENONE) [Concomitant]
  7. ONE-ALPHA (ALFACALCIDOL) [Concomitant]
  8. AMOBAN (ZOPICLONE) [Concomitant]
  9. MYTELASE [Concomitant]

REACTIONS (25)
  - ALANINE AMINOTRANSFERASE INCREASED [None]
  - ANAEMIA [None]
  - ASPARTATE AMINOTRANSFERASE INCREASED [None]
  - BLOOD ALKALINE PHOSPHATASE INCREASED [None]
  - BLOOD CHOLESTEROL INCREASED [None]
  - BLOOD CREATINE PHOSPHOKINASE INCREASED [None]
  - BLOOD GLUCOSE INCREASED [None]
  - BLOOD LACTATE DEHYDROGENASE INCREASED [None]
  - BLOOD UREA INCREASED [None]
  - CONDITION AGGRAVATED [None]
  - GAMMA-GLUTAMYLTRANSFERASE INCREASED [None]
  - GLYCOSYLATED HAEMOGLOBIN INCREASED [None]
  - HAEMATOCRIT DECREASED [None]
  - HAEMOGLOBIN DECREASED [None]
  - INFECTION [None]
  - LYMPHOCYTE COUNT DECREASED [None]
  - LYMPHOCYTE PERCENTAGE DECREASED [None]
  - MONOCYTE COUNT DECREASED [None]
  - MYASTHENIA GRAVIS CRISIS [None]
  - NEUTROPHIL COUNT INCREASED [None]
  - PLATELET COUNT DECREASED [None]
  - RED BLOOD CELL COUNT DECREASED [None]
  - RESPIRATORY DISTRESS [None]
  - WHITE BLOOD CELL COUNT DECREASED [None]
  - WHITE BLOOD CELL COUNT INCREASED [None]
